FAERS Safety Report 5277528-8 (Version None)
Quarter: 2007Q1

REPORT INFORMATION
  Report Type: 
  Country: None (occurrence: None)
  Receive Date: 20070327
  Receipt Date: 20070315
  Transmission Date: 20070707
  Serious: Yes (Life-Threatening, Hospitalization, Disabling)
  Sender: FDA-Public Use
  Company Number: GB-ROCHE-488102

PATIENT
  Age: 22 Year
  Sex: Male
  Weight: 85 kg

DRUGS (6)
  1. ROACCUTANE [Suspect]
     Indication: DRUG USE FOR UNKNOWN INDICATION
     Route: 048
     Dates: start: 20020615, end: 20030615
  2. ROACCUTANE [Suspect]
     Route: 048
     Dates: start: 20060325
  3. VALPROATE SODIUM [Suspect]
     Route: 048
  4. CANNABIS [Concomitant]
  5. COCAINE [Concomitant]
  6. ALCOHOL [Concomitant]

REACTIONS (2)
  - INTENTIONAL SELF-INJURY [None]
  - OVERDOSE [None]
